FAERS Safety Report 4358815-4 (Version None)
Quarter: 2004Q2

REPORT INFORMATION
  Report Type: 
  Country: None (occurrence: None)
  Receive Date: 20040517
  Receipt Date: 20040510
  Transmission Date: 20050107
  Serious: Yes (Hospitalization)
  Sender: FDA-Public Use
  Company Number: US-BRISTOL-MYERS SQUIBB COMPANY-12585048

PATIENT
  Age: 10 Year
  Sex: Female

DRUGS (4)
  1. TEQUIN [Suspect]
     Indication: TUBERCULOSIS
     Dates: end: 20040101
  2. INH [Suspect]
     Indication: TUBERCULOSIS
  3. PYRAZINAMIDE [Suspect]
     Indication: TUBERCULOSIS
  4. ETHAMBUTOL HCL [Suspect]
     Indication: TUBERCULOSIS

REACTIONS (4)
  - DIABETES MELLITUS [None]
  - HYPERGLYCAEMIA [None]
  - HYPERKALAEMIA [None]
  - HYPONATRAEMIA [None]
